FAERS Safety Report 17750628 (Version 1)
Quarter: 2020Q2

REPORT INFORMATION
  Report Type: Spontaneous
  Country: GR (occurrence: GR)
  Receive Date: 20200506
  Receipt Date: 20200506
  Transmission Date: 20200714
  Serious: Yes (Death, Life-Threatening, Hospitalization, Other)
  Sender: FDA-Public Use
  Company Number: GR-ACCORD-180699

PATIENT
  Age: 15 Year
  Sex: Female

DRUGS (1)
  1. ETOPOSIDE. [Suspect]
     Active Substance: ETOPOSIDE
     Indication: GRAFT VERSUS HOST DISEASE

REACTIONS (6)
  - Epstein-Barr viraemia [Fatal]
  - Cerebral toxoplasmosis [Recovered/Resolved]
  - Neutropenia [Unknown]
  - Toxoplasmosis [Recovered/Resolved]
  - Human herpesvirus 6 encephalitis [Recovered/Resolved]
  - Cytomegalovirus infection reactivation [Recovered/Resolved]
